FAERS Safety Report 5965250-1 (Version None)
Quarter: 2008Q4

REPORT INFORMATION
  Report Type: 
  Country: None (occurrence: None)
  Receive Date: 20081125
  Receipt Date: 20081117
  Transmission Date: 20090506
  Serious: Yes (Other)
  Sender: FDA-Public Use
  Company Number: US-AVENTIS-200817910US

PATIENT
  Age: 38 Year
  Sex: Female

DRUGS (5)
  1. ALLEGRA-D 12 HOUR [Suspect]
     Dosage: DOSE: UNK
     Route: 048
  2. LEXAPRO [Suspect]
     Indication: ANXIETY
     Route: 048
     Dates: start: 20080911, end: 20080911
  3. LEXAPRO [Suspect]
     Route: 048
     Dates: start: 20080913, end: 20080914
  4. SKELAXIN [Suspect]
     Dosage: DOSE: UNK
     Dates: start: 20080801, end: 20080101
  5. STEROID NASAL SPRAY [Suspect]
     Indication: SINUSITIS
     Dosage: DOSE: UNK
     Dates: start: 20080101, end: 20080101

REACTIONS (5)
  - HEART RATE INCREASED [None]
  - HYPOAESTHESIA [None]
  - MYDRIASIS [None]
  - PANIC ATTACK [None]
  - PARAESTHESIA [None]
